FAERS Safety Report 10248109 (Version 2)
Quarter: 2014Q2

REPORT INFORMATION
  Report Type: Spontaneous
  Country: JP (occurrence: JP)
  Receive Date: 20140619
  Receipt Date: 20140619
  Transmission Date: 20141212
  Serious: Yes (Other)
  Sender: FDA-Public Use
  Company Number: JP-AMGEN-JPNSP2012067614

PATIENT
  Age: 66 Year
  Sex: Male

DRUGS (10)
  1. ARANESP [Suspect]
     Indication: NEPHROGENIC ANAEMIA
     Dosage: 30 MUG, QWK
     Route: 040
     Dates: start: 20120910, end: 20120924
  2. PURSENNID                          /00142207/ [Concomitant]
     Dosage: UNK
     Route: 048
  3. ALLEGRA [Concomitant]
     Dosage: UNK
     Route: 048
  4. TAKEPRON [Concomitant]
     Dosage: UNK
     Route: 048
  5. ANTEBATE [Concomitant]
     Dosage: UNK
     Route: 062
  6. WARFARIN [Concomitant]
     Dosage: UNCERTAINTY
     Route: 048
  7. MS REISHIPPU [Concomitant]
     Dosage: UNCERTAINTY
     Route: 062
  8. HERBESSER [Concomitant]
     Dosage: UNK
     Route: 048
  9. ASVERIN                            /00465502/ [Concomitant]
     Dosage: UNK
     Route: 048
  10. BAYASPIRIN [Concomitant]
     Dosage: UNK
     Route: 048

REACTIONS (2)
  - Toxic skin eruption [Recovered/Resolved]
  - Neutropenia [Recovered/Resolved]
